FAERS Safety Report 16656537 (Version 2)
Quarter: 2019Q4

REPORT INFORMATION
  Report Type: Report from Study
  Country: CA (occurrence: CA)
  Receive Date: 20190801
  Receipt Date: 20191206
  Transmission Date: 20200122
  Serious: Yes (Other)
  Sender: FDA-Public Use
  Company Number: CA-JNJFOC-20190743725

PATIENT
  Sex: Female
  Weight: 75.4 kg

DRUGS (9)
  1. ONGLYZA [Concomitant]
     Active Substance: SAXAGLIPTIN HYDROCHLORIDE
     Route: 048
  2. ATORVASTATIN [Concomitant]
     Active Substance: ATORVASTATIN
  3. CALCIUM [Concomitant]
     Active Substance: CALCIUM
  4. ESTROGEL [Concomitant]
     Active Substance: ESTRADIOL
  5. REMICADE [Suspect]
     Active Substance: INFLIXIMAB
     Indication: PSORIASIS
     Route: 042
     Dates: start: 20091221
  6. OXAZEPAM. [Concomitant]
     Active Substance: OXAZEPAM
     Route: 048
  7. CALCITE D [Concomitant]
     Active Substance: CALCIUM CARBONATE
     Route: 048
  8. DOXYCIN [Concomitant]
     Active Substance: DOXYCYCLINE
     Route: 048
  9. METFORMIN [Concomitant]
     Active Substance: METFORMIN HYDROCHLORIDE
     Route: 048

REACTIONS (1)
  - Basal cell carcinoma [Not Recovered/Not Resolved]
